FAERS Safety Report 4739130-3 (Version None)
Quarter: 2005Q3

REPORT INFORMATION
  Report Type: 
  Country: None (occurrence: None)
  Receive Date: 20050810
  Receipt Date: 20050421
  Transmission Date: 20060218
  Serious: No
  Sender: FDA-Public Use
  Company Number: US-GLAXOSMITHKLINE-A0555204A

PATIENT
  Age: 38 Year
  Sex: Female

DRUGS (5)
  1. PAXIL CR [Suspect]
     Dosage: 25MG TWICE PER DAY
     Route: 048
  2. PAXIL [Suspect]
     Dosage: 20MG TWICE PER DAY
     Route: 048
  3. HERBS [Concomitant]
  4. DIOVAN [Concomitant]
  5. HUMIRA [Concomitant]
     Route: 065

REACTIONS (4)
  - ANXIETY [None]
  - ARTHRALGIA [None]
  - JOINT STIFFNESS [None]
  - THERAPEUTIC RESPONSE UNEXPECTED [None]
